FAERS Safety Report 9009366 (Version 1)
Quarter: 2013Q1

REPORT INFORMATION
  Report Type: Spontaneous
  Country: US (occurrence: US)
  Receive Date: 20130111
  Receipt Date: 20130111
  Transmission Date: 20140127
  Serious: Yes (Other)
  Sender: FDA-Public Use
  Company Number: US-009507513-1012USA00424

PATIENT
  Age: 9 Year
  Sex: Female
  Weight: 29.48 kg

DRUGS (2)
  1. SINGULAIR [Suspect]
     Indication: ASTHMA
     Dosage: 1 DF, HS
     Route: 048
  2. SINGULAIR [Suspect]
     Indication: HYPERSENSITIVITY

REACTIONS (3)
  - Musculoskeletal chest pain [Unknown]
  - Cough [Unknown]
  - Pain in extremity [Unknown]
